FAERS Safety Report 25321134 (Version 1)
Quarter: 2025Q2

REPORT INFORMATION
  Report Type: Spontaneous
  Country: US (occurrence: US)
  Receive Date: 20250515
  Receipt Date: 20250515
  Transmission Date: 20250717
  Serious: No
  Sender: AMGEN
  Company Number: US-AMGEN-USASP2025094979

PATIENT
  Sex: Female

DRUGS (6)
  1. OTEZLA [Suspect]
     Active Substance: APREMILAST
     Indication: Psoriasis
     Dosage: 30 MILLIGRAM, BID
     Route: 048
     Dates: start: 20240220
  2. FLONASE [Concomitant]
     Active Substance: FLUTICASONE PROPIONATE
  3. FLUTICASONE [Concomitant]
     Active Substance: FLUTICASONE
  4. MAXALT [Concomitant]
     Active Substance: RIZATRIPTAN BENZOATE
  5. ONDANSETRON [Concomitant]
     Active Substance: ONDANSETRON
  6. RIZATRIPTAN [Concomitant]
     Active Substance: RIZATRIPTAN

REACTIONS (1)
  - Nausea [Unknown]
